FAERS Safety Report 7677877-X (Version None)
Quarter: 2011Q3

REPORT INFORMATION
  Report Type: 
  Country: None (occurrence: None)
  Receive Date: 20110811
  Receipt Date: 20110802
  Transmission Date: 20111222
  Serious: Yes (Life-Threatening)
  Sender: FDA-Public Use
  Company Number: JP-MERCK-1108USA00674

PATIENT
  Age: 71 Year
  Sex: Male

DRUGS (5)
  1. CONIEL [Concomitant]
     Indication: HYPERTENSION
     Route: 048
     Dates: start: 19981211
  2. PRIMAXIN [Suspect]
     Indication: ACUTE SINUSITIS
     Route: 030
     Dates: start: 20100914
  3. COZAAR [Concomitant]
     Indication: HYPERTENSION
     Route: 048
     Dates: start: 20080118
  4. TAMSULOSIN HCL [Concomitant]
     Indication: BENIGN PROSTATIC HYPERPLASIA
     Route: 048
     Dates: start: 20071105
  5. ADOAIR [Concomitant]
     Indication: ASTHMA
     Route: 055
     Dates: start: 20071102

REACTIONS (2)
  - ASTHMA [None]
  - ANAPHYLACTIC SHOCK [None]
